FAERS Safety Report 6933205-6 (Version None)
Quarter: 2010Q3

REPORT INFORMATION
  Report Type: 
  Country: None (occurrence: None)
  Receive Date: 20100820
  Receipt Date: 20100816
  Transmission Date: 20110219
  Serious: Yes (Other)
  Sender: FDA-Public Use
  Company Number: US-ASTRAZENECA-2007UW13888

PATIENT
  Age: 35 Year
  Sex: Male
  Weight: 135.2 kg

DRUGS (47)
  1. SEROQUEL [Suspect]
     Indication: BIPOLAR DISORDER
     Route: 048
     Dates: start: 19980201, end: 20080801
  2. SEROQUEL [Suspect]
     Indication: DEPRESSION
     Route: 048
     Dates: start: 19980201, end: 20080801
  3. SEROQUEL [Suspect]
     Indication: SCHIZOPHRENIA
     Route: 048
     Dates: start: 19980201, end: 20080801
  4. SEROQUEL [Suspect]
     Indication: SCHIZOAFFECTIVE DISORDER
     Route: 048
     Dates: start: 19980201, end: 20080801
  5. SEROQUEL [Suspect]
     Dosage: 100-400 MG
     Route: 048
     Dates: start: 20030218
  6. SEROQUEL [Suspect]
     Dosage: 100-400 MG
     Route: 048
     Dates: start: 20030218
  7. SEROQUEL [Suspect]
     Dosage: 100-400 MG
     Route: 048
     Dates: start: 20030218
  8. SEROQUEL [Suspect]
     Dosage: 100-400 MG
     Route: 048
     Dates: start: 20030218
  9. SEROQUEL [Suspect]
     Dosage: 200-800 MG
     Route: 048
     Dates: start: 20040303, end: 20060116
  10. SEROQUEL [Suspect]
     Dosage: 200-800 MG
     Route: 048
     Dates: start: 20040303, end: 20060116
  11. SEROQUEL [Suspect]
     Dosage: 200-800 MG
     Route: 048
     Dates: start: 20040303, end: 20060116
  12. SEROQUEL [Suspect]
     Dosage: 200-800 MG
     Route: 048
     Dates: start: 20040303, end: 20060116
  13. RISPERDAL [Suspect]
     Dates: start: 19971201, end: 19980601
  14. RISPERDAL [Suspect]
     Dosage: 2-8 MG
     Dates: start: 19990811
  15. ZYPREXA [Suspect]
     Dates: start: 19990601, end: 19991201
  16. ZYPREXA [Suspect]
     Dates: start: 19990712
  17. PERCOCET [Concomitant]
     Dosage: AS NEEDED, 5/325 DAILY
     Route: 048
     Dates: start: 20041215
  18. HYDROCODONE BITARTRATE [Concomitant]
     Dates: start: 20030616
  19. CYMBALTA [Concomitant]
     Dosage: 30-90 MG
     Route: 048
     Dates: start: 20060712
  20. KLONOPIN [Concomitant]
     Dosage: 0.5-1.5 MG
     Route: 048
     Dates: start: 20000905
  21. OMEPRAZOLE [Concomitant]
     Route: 048
     Dates: start: 20060712
  22. VICODIN [Concomitant]
     Indication: PAIN
     Dosage: 1-2 TABLETS 4-6 HOURS AS NEEDED
     Route: 048
     Dates: start: 20030131
  23. POTASSIUM [Concomitant]
     Dates: start: 20060712
  24. GLUCOPHAGE XR [Concomitant]
     Route: 048
     Dates: start: 20000210
  25. PHENERGAN [Concomitant]
     Indication: NAUSEA
     Dosage: 25 MG THREE TIMES A DAY, 6 HOURS, AS NEEDED
     Route: 048
     Dates: start: 20040421
  26. PREVACID [Concomitant]
     Indication: GASTRITIS
     Dosage: 30-60 MG
     Dates: start: 19950101
  27. ADVAIR DISKUS 100/50 [Concomitant]
     Dosage: 250/50 1 PUFF TWO TIMES A DAY
     Dates: start: 20020610
  28. CELEBREX [Concomitant]
     Route: 048
     Dates: start: 20011109
  29. ZESTRIL [Concomitant]
     Dates: start: 19991019
  30. LITHOBID [Concomitant]
     Dosage: 300-1200 MG
     Route: 048
     Dates: start: 20000905
  31. PROPRANOLOL [Concomitant]
     Dosage: 10 MG, 2 DAILY
     Dates: start: 20000905
  32. VIOXX [Concomitant]
     Dates: start: 20000905
  33. SERZONE [Concomitant]
     Dosage: 100-200 MG
     Dates: start: 19990824
  34. HYOSCYAMINE [Concomitant]
     Dosage: 0.375 TO 0.750 MG
     Dates: start: 20040329
  35. RESTORIL [Concomitant]
     Dosage: 75 MG 1 OR 2 AT NIGHT
     Dates: start: 20040329
  36. LEXAPRO [Concomitant]
     Dates: start: 20040329
  37. WELLBUTRIN SR [Concomitant]
     Dosage: 150 IN MORNING AND 1 IN AFTERNOON
     Dates: start: 20040329
  38. HALDOL [Concomitant]
     Dosage: 20 MG-60 MG
     Dates: start: 20040329
  39. AMANTADINE [Concomitant]
     Dates: start: 20040329
  40. ZYRTEC-D 12 HOUR [Concomitant]
     Dosage: 1 TABLET TWO TIMES A DAY
     Dates: start: 20040329
  41. FLOMAX [Concomitant]
     Dates: start: 20040329
  42. OXYCONTIN [Concomitant]
     Dates: start: 20040329
  43. OXYCODONE HCL AND ACETAMINOPHEN [Concomitant]
     Indication: PAIN
     Dosage: 5/325 1 OR 2 TABLETS Q4-Q6 AS NEEDED
     Dates: start: 20040329
  44. ABILIFY [Concomitant]
     Dates: start: 19950101, end: 19950101
  45. CLOZARIL [Concomitant]
     Dates: start: 19930101, end: 19930101
  46. GEODON [Concomitant]
     Dates: start: 20080101
  47. THORAZINE [Concomitant]

REACTIONS (8)
  - COMA [None]
  - CONTUSION [None]
  - DIABETIC NEUROPATHY [None]
  - HYPERGLYCAEMIA [None]
  - NEUROPATHY PERIPHERAL [None]
  - PNEUMONIA [None]
  - POLYNEUROPATHY [None]
  - TYPE 2 DIABETES MELLITUS [None]
